FAERS Safety Report 9832125 (Version 1)
Quarter: 2014Q1

REPORT INFORMATION
  Report Type: Spontaneous
  Country: IN (occurrence: IN)
  Receive Date: 20140121
  Receipt Date: 20140121
  Transmission Date: 20141002
  Serious: Yes (Other)
  Sender: FDA-Public Use
  Company Number: IN-MYLANLABS-2014S1000673

PATIENT
  Age: 57 Year
  Sex: Male

DRUGS (7)
  1. LORAZEPAM [Suspect]
     Indication: SOMATOFORM DISORDER
     Dosage: 3MG DAILY
     Route: 065
  2. LORAZEPAM [Suspect]
     Indication: SOMATOFORM DISORDER
     Dosage: 2MG
     Route: 065
  3. AMLODIPINE [Concomitant]
     Indication: HYPERTENSION
     Dosage: 5MG
     Route: 065
  4. LOSARTAN [Concomitant]
     Indication: HYPERTENSION
     Dosage: 50MG
     Route: 065
  5. HYDROCHLOROTHIAZIDE [Concomitant]
     Indication: HYPERTENSION
     Dosage: 12.5MG
     Route: 065
  6. VENLAFAXINE [Concomitant]
     Indication: DEPRESSION
     Dosage: 150MG
     Route: 065
  7. MIRTAZAPINE [Concomitant]
     Indication: DEPRESSION
     Dosage: 15MG
     Route: 065

REACTIONS (3)
  - Catatonia [Recovered/Resolved]
  - Drug withdrawal syndrome [Recovered/Resolved]
  - Urinary incontinence [Recovered/Resolved]
